FAERS Safety Report 4508075-6 (Version None)
Quarter: 2004Q4

REPORT INFORMATION
  Report Type: 
  Country: None (occurrence: None)
  Receive Date: 20041123
  Receipt Date: 20031008
  Transmission Date: 20050328
  Serious: No
  Sender: FDA-Public Use
  Company Number: US-GLAXOSMITHKLINE-A0429501A

PATIENT
  Age: 42 Year
  Sex: Male

DRUGS (3)
  1. WELLBUTRIN [Suspect]
     Indication: ILL-DEFINED DISORDER
     Dosage: 100MG THREE TIMES PER DAY
     Route: 048
     Dates: start: 19960101
  2. WELLBUTRIN [Suspect]
     Dosage: 150MG UNKNOWN
     Route: 048
  3. WELLBUTRIN [Suspect]
     Dosage: 300MG UNKNOWN
     Route: 048

REACTIONS (4)
  - ABDOMINAL PAIN UPPER [None]
  - INSOMNIA [None]
  - NAUSEA [None]
  - SOMNOLENCE [None]
